FAERS Safety Report 6884940-X (Version None)
Quarter: 2010Q3

REPORT INFORMATION
  Report Type: 
  Country: None (occurrence: None)
  Receive Date: 20100729
  Receipt Date: 20071218
  Transmission Date: 20110219
  Serious: Yes (Other)
  Sender: FDA-Public Use
  Company Number: US-PFIZER INC-2007072846

PATIENT
  Sex: Male

DRUGS (4)
  1. CELEBREX [Suspect]
     Indication: PLANTAR FASCIITIS
     Route: 048
     Dates: start: 20070810
  2. AMARYL [Concomitant]
  3. TRICOR [Concomitant]
  4. ZETIA [Concomitant]

REACTIONS (1)
  - CHEST PAIN [None]
